FAERS Safety Report 7778877-1 (Version None)
Quarter: 2011Q3

REPORT INFORMATION
  Report Type: 
  Country: None (occurrence: None)
  Receive Date: 20110926
  Receipt Date: 20110916
  Transmission Date: 20111222
  Serious: Yes (Other)
  Sender: FDA-Public Use
  Company Number: US-JNJFOC-20110908935

PATIENT
  Sex: Female
  Weight: 111.59 kg

DRUGS (14)
  1. DICYCLOMINE [Concomitant]
     Dosage: AS NEEDED EVERY 6HOURS
     Route: 065
     Dates: start: 20080101
  2. DIAZEPAM [Concomitant]
     Route: 065
     Dates: start: 20060101
  3. FENTANYL-100 [Concomitant]
     Indication: PAIN
     Route: 065
  4. NUCYNTA ER [Suspect]
     Indication: NEUROPATHY PERIPHERAL
     Dosage: TWICE A DAY
     Route: 048
  5. NUCYNTA [Suspect]
     Indication: CERVICOGENIC HEADACHE
     Dosage: 1 PER DAY
     Route: 048
     Dates: start: 20110428, end: 20110901
  6. NUCYNTA [Suspect]
     Indication: FIBROMYALGIA
     Dosage: 1 PER DAY
     Route: 048
     Dates: start: 20110428, end: 20110901
  7. NUCYNTA ER [Suspect]
     Indication: FIBROMYALGIA
     Dosage: TWICE A DAY
     Route: 048
  8. NUCYNTA [Suspect]
     Indication: NEUROPATHY PERIPHERAL
     Dosage: 1 PER DAY
     Route: 048
     Dates: start: 20110428, end: 20110901
  9. CYMBALTA [Concomitant]
     Indication: PAIN
     Dosage: TWICE A DAY
     Route: 048
     Dates: start: 20070101
  10. NUCYNTA ER [Suspect]
     Indication: SCIATICA
     Dosage: TWICE A DAY
     Route: 048
  11. NUCYNTA ER [Suspect]
     Indication: CERVICOGENIC HEADACHE
     Dosage: TWICE A DAY
     Route: 048
  12. NUCYNTA [Suspect]
     Indication: SCIATICA
     Dosage: 1 PER DAY
     Route: 048
     Dates: start: 20110428, end: 20110901
  13. METHOCARBAMOL [Concomitant]
     Indication: NEUROPATHY PERIPHERAL
     Dosage: 2 TID
     Route: 048
     Dates: start: 19940101
  14. PERCOCET [Concomitant]
     Indication: PAIN
     Dosage: 10/325MG AS NEEDED EVERY 4HOURS
     Route: 065
     Dates: start: 20110101

REACTIONS (3)
  - INSOMNIA [None]
  - HERPES ZOSTER [None]
  - DRUG DOSE OMISSION [None]
